FAERS Safety Report 9671860 (Version 2)
Quarter: 2013Q4

REPORT INFORMATION
  Report Type: Spontaneous
  Country: GB (occurrence: GB)
  Receive Date: 20131106
  Receipt Date: 20131206
  Transmission Date: 20140711
  Serious: Yes (Death, Hospitalization)
  Sender: FDA-Public Use
  Company Number: GB-BRISTOL-MYERS SQUIBB COMPANY-19717123

PATIENT
  Age: 72 Year
  Sex: Female

DRUGS (6)
  1. YERVOY [Suspect]
     Indication: METASTATIC MALIGNANT MELANOMA
     Dosage: CYCLE 1:07AUG13
     Route: 042
     Dates: start: 20131009
  2. METFORMIN HCL [Concomitant]
  3. PREDNISOLONE [Concomitant]
  4. SIMVASTATIN [Concomitant]
  5. CLEXANE [Concomitant]
     Dosage: SUBSTITUTED FOR WARFARIN WHILE ON CHEMOTHERAPY
  6. OMEPRAZOLE [Concomitant]

REACTIONS (4)
  - Sepsis [Fatal]
  - Circulatory collapse [Unknown]
  - Malaise [Unknown]
  - Pyrexia [Unknown]
